FAERS Safety Report 10664086 (Version 1)
Quarter: 2014Q4

REPORT INFORMATION
  Report Type: Spontaneous
  Country: US (occurrence: None)
  Receive Date: 20141217
  Receipt Date: 20141217
  Transmission Date: 20150529
  Serious: Yes (Death, Hospitalization)
  Sender: FDA-Public Use
  Company Number: 2014VID00104

PATIENT
  Age: 50 Year
  Sex: Male

DRUGS (3)
  1. ABACAVIR (ABACAVIR) [Suspect]
     Active Substance: ABACAVIR
     Indication: HIV INFECTION
  2. UNSPECIFIED HIV MEDICATION (UNKNOWN) [Suspect]
     Active Substance: UNSPECIFIED INGREDIENT
     Indication: HIV INFECTION
  3. INTERFERON GAMMA NOS [Suspect]
     Active Substance: INTERFERON GAMMA
     Indication: VIRAL HEPATITIS CARRIER

REACTIONS (11)
  - Acute kidney injury [None]
  - Liver disorder [None]
  - HIV infection [None]
  - Drug reaction with eosinophilia and systemic symptoms [None]
  - Disease progression [None]
  - Therapy cessation [None]
  - Bacterial sepsis [None]
  - Viral load increased [None]
  - Acinetobacter infection [None]
  - Immunodeficiency [None]
  - Condition aggravated [None]
